FAERS Safety Report 5393424-X (Version None)
Quarter: 2007Q3

REPORT INFORMATION
  Report Type: 
  Country: None (occurrence: None)
  Receive Date: 20070719
  Receipt Date: 20070719
  Transmission Date: 20080115
  Serious: Yes (Life-Threatening, Hospitalization)
  Sender: FDA-Public Use
  Company Number: None

PATIENT
  Age: 68 Year
  Sex: Male
  Weight: 94 kg

DRUGS (6)
  1. BEVACIZUMAB 10MG/KG [Suspect]
     Dosage: 940MG IV Q 14 DAYS
     Route: 042
     Dates: start: 20070524
  2. BEVACIZUMAB 10MG/KG [Suspect]
     Dosage: 940MG IV Q 14 DAYS
     Route: 042
     Dates: start: 20070605
  3. BEVACIZUMAB 10MG/KG [Suspect]
     Dosage: 940MG IV Q 14 DAYS
     Route: 042
     Dates: start: 20070619
  4. BEVACIZUMAB 10MG/KG [Suspect]
     Dosage: 940MG IV Q 14 DAYS
     Route: 042
     Dates: start: 20070703
  5. INTERLEUKIN -2 22 M14/VIAL [Suspect]
     Dosage: 11.8 MIU M-F X 6 WKS SQ
     Route: 058
     Dates: start: 20070605
  6. INTERLEUKIN -2 22 M14/VIAL [Suspect]
     Dosage: 11.8 MIU M-F X 6 WKS SQ
     Route: 058
     Dates: start: 20070704

REACTIONS (2)
  - CORONARY ARTERY STENOSIS [None]
  - MYOCARDIAL INFARCTION [None]
